FAERS Safety Report 17084167 (Version 2)
Quarter: 2019Q4

REPORT INFORMATION
  Report Type: Spontaneous
  Country: JP (occurrence: JP)
  Receive Date: 20191127
  Receipt Date: 20191219
  Transmission Date: 20200122
  Serious: Yes (Other)
  Sender: FDA-Public Use
  Company Number: JP-BAYER-2019-209616

PATIENT
  Age: 79 Year
  Sex: Male

DRUGS (4)
  1. XOFIGO [Suspect]
     Active Substance: RADIUM RA-223 DICHLORIDE
     Indication: PROSTATE CANCER METASTATIC
     Dosage: 6160KBQ,ONCE PER MONTH, INTRAVENOUS INJECTION
     Route: 042
     Dates: start: 20190801, end: 20191112
  2. PREDNISOLONE. [Concomitant]
     Active Substance: PREDNISOLONE
     Indication: PROSTATE CANCER
     Dosage: 5MG
  3. XOFIGO [Suspect]
     Active Substance: RADIUM RA-223 DICHLORIDE
     Indication: METASTASES TO BONE
  4. PROSEXOL [Concomitant]
     Active Substance: ETHINYL ESTRADIOL
     Indication: PROSTATE CANCER
     Dosage: UNK

REACTIONS (3)
  - Haemoglobin decreased [Not Recovered/Not Resolved]
  - Anaemia [Not Recovered/Not Resolved]
  - Prostate cancer [None]

NARRATIVE: CASE EVENT DATE: 20191112
